FAERS Safety Report 9682190 (Version 1)
Quarter: 2013Q4

REPORT INFORMATION
  Report Type: Spontaneous
  Country: PT (occurrence: PT)
  Receive Date: 20131111
  Receipt Date: 20131111
  Transmission Date: 20140711
  Serious: No
  Sender: FDA-Public Use
  Company Number: PT-B.I. PHARMACEUTICALS,INC./RIDGEFIELD-2013-BI-35569PO

PATIENT
  Age: 78 Year
  Sex: Female
  Weight: 70 kg

DRUGS (8)
  1. TRAJENTA [Suspect]
     Indication: DIABETES MELLITUS
     Dosage: 1 ANZ
     Route: 048
     Dates: start: 20130710, end: 20130724
  2. TRAJENTA [Suspect]
     Indication: RENAL FAILURE CHRONIC
  3. TROMALYT [Concomitant]
     Dosage: 1 ANZ
     Route: 048
  4. AMLODIPINE [Concomitant]
     Dosage: 1 ANZ
     Route: 048
  5. ATORVASTATIN [Concomitant]
     Dosage: 1 ANZ
     Route: 048
  6. ENALAPRIL + HYDROCHLOROTHIAZIDE [Concomitant]
     Dosage: 1 ANZ
     Route: 048
  7. GLICLAZIDE [Concomitant]
     Dosage: 2 ANZ
     Route: 048
  8. LYRICA [Concomitant]
     Dosage: 1 ANZ

REACTIONS (5)
  - Tongue oedema [Recovered/Resolved]
  - Lip oedema [Recovered/Resolved]
  - Pharyngeal oedema [Recovered/Resolved]
  - Cough [Recovered/Resolved]
  - Pruritus [Recovered/Resolved]
